FAERS Safety Report 9821597 (Version 2)
Quarter: 2014Q1

REPORT INFORMATION
  Report Type: Spontaneous
  Country: US (occurrence: US)
  Receive Date: 20140116
  Receipt Date: 20140116
  Transmission Date: 20141002
  Serious: No
  Sender: FDA-Public Use
  Company Number: US-GILEAD-2011-0036925

PATIENT
  Sex: Female

DRUGS (3)
  1. LETAIRIS [Suspect]
     Indication: PULMONARY HYPERTENSION
     Route: 048
     Dates: start: 20100207
  2. LETAIRIS [Suspect]
     Indication: ATRIAL SEPTAL DEFECT
  3. REMODULIN [Concomitant]

REACTIONS (6)
  - Diarrhoea [Unknown]
  - Decreased appetite [Unknown]
  - Depression [Unknown]
  - Oedema [Unknown]
  - Dyspnoea [Unknown]
  - Nausea [Unknown]
